FAERS Safety Report 10648824 (Version 1)
Quarter: 2014Q4

REPORT INFORMATION
  Report Type: Spontaneous
  Country: IT (occurrence: IT)
  Receive Date: 20141212
  Receipt Date: 20141212
  Transmission Date: 20150529
  Serious: Yes (Other)
  Sender: FDA-Public Use
  Company Number: IT-TEVA-527278ISR

PATIENT
  Age: 77 Year
  Sex: Male
  Weight: 65 kg

DRUGS (4)
  1. FLUOROURACILE TEVA [Suspect]
     Active Substance: FLUOROURACIL
     Indication: GASTRIC CANCER
     Dosage: 600 MG DAILY FOR 5 CONSECUTIVE DAYS EVERY 21 DAYS
     Route: 042
     Dates: start: 20141013, end: 20141016
  2. COUMADIN [Concomitant]
     Active Substance: WARFARIN SODIUM
     Indication: ATRIAL FIBRILLATION
  3. CALCIO LEVOFOLINATO TEVA [Concomitant]
     Active Substance: LEUCOVORIN CALCIUM
     Route: 042
     Dates: start: 20141013, end: 20141016
  4. DECADRON [Concomitant]
     Active Substance: DEXAMETHASONE
     Route: 042
     Dates: start: 20141013, end: 20141016

REACTIONS (2)
  - Atrial fibrillation [Recovered/Resolved]
  - Dizziness [Recovered/Resolved]

NARRATIVE: CASE EVENT DATE: 20141016
